FAERS Safety Report 21734381 (Version 1)
Quarter: 2022Q4

REPORT INFORMATION
  Report Type: Spontaneous
  Country: US (occurrence: None)
  Receive Date: 20221214
  Receipt Date: 20221214
  Transmission Date: 20230113
  Serious: No
  Sender: FDA-Public Use
  Company Number: None

PATIENT
  Age: 62 Year
  Sex: Female

DRUGS (1)
  1. XELJANZ XR [Suspect]
     Active Substance: TOFACITINIB CITRATE
     Indication: Psoriatic arthropathy
     Dosage: FREQUENCY : DAILY;?
     Route: 048
     Dates: start: 202205

REACTIONS (3)
  - Psoriatic arthropathy [None]
  - Asthma [None]
  - Drug ineffective [None]
